FAERS Safety Report 17740173 (Version 1)
Quarter: 2020Q2

REPORT INFORMATION
  Report Type: Spontaneous
  Country: US (occurrence: US)
  Receive Date: 20200504
  Receipt Date: 20200504
  Transmission Date: 20200714
  Serious: Yes (Death)
  Sender: FDA-Public Use
  Company Number: None

PATIENT
  Age: 82 Year
  Sex: Male
  Weight: 89.81 kg

DRUGS (3)
  1. ZYTIGA [Suspect]
     Active Substance: ABIRATERONE ACETATE
     Indication: PROSTATE CANCER
     Route: 048
     Dates: start: 201906
  2. ZYTIGA [Suspect]
     Active Substance: ABIRATERONE ACETATE
     Indication: ANAEMIA
     Route: 048
     Dates: start: 201906
  3. ZYTIGA [Suspect]
     Active Substance: ABIRATERONE ACETATE
     Indication: IRON DEFICIENCY ANAEMIA
     Route: 048
     Dates: start: 201906

REACTIONS (1)
  - Death [None]
